FAERS Safety Report 7295516-7 (Version None)
Quarter: 2011Q1

REPORT INFORMATION
  Report Type: 
  Country: None (occurrence: None)
  Receive Date: 20110216
  Receipt Date: 20101122
  Transmission Date: 20110831
  Serious: No
  Sender: FDA-Public Use
  Company Number: US-ABBOTT-10P-163-0687312-00

PATIENT
  Sex: Male
  Weight: 71.278 kg

DRUGS (2)
  1. UNKNOWN MEDICATION [Concomitant]
     Indication: BLOOD PRESSURE
  2. SIMCOR [Suspect]
     Indication: HYPERLIPIDAEMIA
     Dates: start: 20101022

REACTIONS (1)
  - FLUSHING [None]
